FAERS Safety Report 8126096-1 (Version None)
Quarter: 2012Q1

REPORT INFORMATION
  Report Type: 
  Country: None (occurrence: None)
  Receive Date: 20120209
  Receipt Date: 20120202
  Transmission Date: 20120608
  Serious: Yes (Other)
  Sender: FDA-Public Use
  Company Number: PHEH2011US012613

PATIENT
  Sex: Male

DRUGS (4)
  1. EXJADE [Suspect]
     Dosage: UNK UKN, UNK
  2. PREDNISONE [Suspect]
  3. EXJADE [Suspect]
     Dosage: 375 MG, QD
     Route: 048
  4. EXJADE [Suspect]
     Dosage: 500 MG, QD
     Route: 048

REACTIONS (3)
  - CYSTITIS [None]
  - DIARRHOEA [None]
  - DYSURIA [None]
